FAERS Safety Report 15390117 (Version 1)
Quarter: 2018Q3

REPORT INFORMATION
  Report Type: Spontaneous
  Country: US (occurrence: US)
  Receive Date: 20180908
  Receipt Date: 20180908
  Transmission Date: 20181010
  Serious: Yes (Other)
  Sender: FDA-Public Use
  Company Number: None

PATIENT
  Age: 64 Year
  Sex: Female
  Weight: 99 kg

DRUGS (10)
  1. BENAZEPRIL [Concomitant]
     Active Substance: BENAZEPRIL HYDROCHLORIDE
  2. FUROSEMIDE. [Concomitant]
     Active Substance: FUROSEMIDE
  3. MULTIVITAMN [Concomitant]
  4. STOOL SOFTERNE PLUS LAXATIVE COMBINATION [Concomitant]
  5. ACETAMINOPHEN. [Concomitant]
     Active Substance: ACETAMINOPHEN
  6. GABAPENTIN. [Suspect]
     Active Substance: GABAPENTIN
     Indication: NEURALGIA
     Dosage: ?          QUANTITY:270 DF DOSAGE FORM;OTHER FREQUENCY:900 MG 3 X DAY;?
     Route: 048
     Dates: start: 20170811
  7. LEVOTHYROXINE. [Concomitant]
     Active Substance: LEVOTHYROXINE
  8. VRAYLAR [Suspect]
     Active Substance: CARIPRAZINE
     Indication: BIPOLAR DISORDER
     Dosage: ?          QUANTITY:20 DF DOSAGE FORM;?
     Route: 048
  9. DULOXETINE. [Concomitant]
     Active Substance: DULOXETINE
  10. VITAMIN B COMPLEX [Concomitant]
     Active Substance: CYANOCOBALAMIN\DEXPANTHENOL\NIACINAMIDE\PYRIDOXINE HYDROCHLORIDE\RIBOFLAVIN 5^-PHOSPHATE SODIUM\THIAMINE HYDROCHLORIDE\VITAMIN B COMPLEX

REACTIONS (10)
  - Insomnia [None]
  - Mania [None]
  - Fatigue [None]
  - Loss of consciousness [None]
  - Headache [None]
  - Nausea [None]
  - Abdominal pain upper [None]
  - Hallucination [None]
  - Vomiting [None]
  - Depression [None]

NARRATIVE: CASE EVENT DATE: 20180907
